FAERS Safety Report 14221915 (Version 1)
Quarter: 2017Q4

REPORT INFORMATION
  Report Type: Spontaneous
  Country: US (occurrence: US)
  Receive Date: 20171124
  Receipt Date: 20171124
  Transmission Date: 20180321
  Serious: No
  Sender: FDA-Public Use
  Company Number: US-ALVOGEN-2017-ALVOGEN-092937

PATIENT
  Age: 31 Year
  Sex: Male
  Weight: 92.99 kg

DRUGS (4)
  1. ROSUVASTATIN CALCIUM. [Suspect]
     Active Substance: ROSUVASTATIN CALCIUM
     Indication: BLOOD CHOLESTEROL INCREASED
     Route: 048
     Dates: start: 20170710, end: 20170721
  2. LISINOPRIL. [Suspect]
     Active Substance: LISINOPRIL
     Indication: HYPERTENSION
     Dosage: CUTS THE MEDICINE TO HALF TO BE 10 MG BEFORE BEDTIME DEPENDING ON HIS SYMPTOMS
     Route: 048
     Dates: start: 2013
  3. ZINC. [Concomitant]
     Active Substance: ZINC
     Indication: RASH
     Route: 048
  4. FISH OIL [Concomitant]
     Active Substance: FISH OIL
     Indication: BLOOD TRIGLYCERIDES
     Route: 048

REACTIONS (9)
  - Insomnia [Unknown]
  - Anxiety [Unknown]
  - Muscle tightness [Unknown]
  - Dizziness [Unknown]
  - Pain in extremity [Unknown]
  - Abdominal pain upper [Unknown]
  - Chest pain [Unknown]
  - Blood cholesterol increased [Unknown]
  - Muscular weakness [Unknown]

NARRATIVE: CASE EVENT DATE: 2013
